FAERS Safety Report 14667233 (Version 1)
Quarter: 2018Q1

REPORT INFORMATION
  Report Type: Report from Study
  Country: IT (occurrence: IT)
  Receive Date: 20180322
  Receipt Date: 20180322
  Transmission Date: 20180509
  Serious: Yes (Other)
  Sender: FDA-Public Use
  Company Number: IT-ROCHE-1987928

PATIENT

DRUGS (1)
  1. OMALIZUMAB. [Suspect]
     Active Substance: OMALIZUMAB
     Indication: ASTHMA
     Dosage: 75-600 MG, 1-4 INJECTIONS?LOGITUDINAL PHASE
     Route: 058

REACTIONS (6)
  - Pulmonary oedema [Unknown]
  - Asthma [Unknown]
  - Infection [Unknown]
  - Respiratory disorder [Unknown]
  - Pelvic fracture [Unknown]
  - Drug ineffective [Unknown]
